FAERS Safety Report 10331568 (Version 1)
Quarter: 2014Q3

REPORT INFORMATION
  Report Type: Spontaneous
  Country: GB (occurrence: GB)
  Receive Date: 20140722
  Receipt Date: 20140722
  Transmission Date: 20150326
  Serious: Yes (Other)
  Sender: FDA-Public Use
  Company Number: GB-WATSON-2014-15494

PATIENT
  Age: 25 Year
  Sex: Female
  Weight: 64 kg

DRUGS (1)
  1. TRIMETHOPRIM (UNKNOWN) [Suspect]
     Active Substance: TRIMETHOPRIM
     Indication: PRODUCT USED FOR UNKNOWN INDICATION
     Dosage: UNK
     Route: 048
     Dates: start: 20140619

REACTIONS (1)
  - Skin irritation [Recovering/Resolving]

NARRATIVE: CASE EVENT DATE: 20140626
